FAERS Safety Report 9429165 (Version 1)
Quarter: 2013Q3

REPORT INFORMATION
  Report Type: Report from Study
  Country: US (occurrence: US)
  Receive Date: 20130730
  Receipt Date: 20130730
  Transmission Date: 20140515
  Serious: Yes (Other)
  Sender: FDA-Public Use
  Company Number: US-BAYER-2013-091665

PATIENT
  Sex: Female

DRUGS (1)
  1. MIRENA [Suspect]
     Dosage: 20 MCG/24HR, CONT
     Route: 015
     Dates: end: 20130515

REACTIONS (4)
  - Menstruation delayed [None]
  - Uterine dilation and curettage [None]
  - Vaginal haemorrhage [Recovered/Resolved]
  - Abdominal pain [None]
